FAERS Safety Report 25003820 (Version 2)
Quarter: 2025Q1

REPORT INFORMATION
  Report Type: Report from Study
  Country: US (occurrence: US)
  Receive Date: 20250224
  Receipt Date: 20250331
  Transmission Date: 20250409
  Serious: Yes (Death)
  Sender: DAIICHI
  Company Number: US-DSJP-DS-2025-124214-USAA

PATIENT
  Age: 77 Year
  Sex: Female

DRUGS (2)
  1. ENHERTU [Suspect]
     Active Substance: FAM-TRASTUZUMAB DERUXTECAN-NXKI
     Indication: Bladder cancer
     Route: 065
     Dates: start: 20241017, end: 20250326
  2. ENHERTU [Suspect]
     Active Substance: FAM-TRASTUZUMAB DERUXTECAN-NXKI
     Indication: Lung carcinoma cell type unspecified stage 0
     Dosage: 400 MG, ONCE EVERY 3 WK
     Route: 042
     Dates: start: 20241022

REACTIONS (2)
  - Death [Fatal]
  - Therapy interrupted [Not Recovered/Not Resolved]

NARRATIVE: CASE EVENT DATE: 20250207
